FAERS Safety Report 4953500-X (Version None)
Quarter: 2006Q1

REPORT INFORMATION
  Report Type: 
  Country: None (occurrence: None)
  Receive Date: 20060324
  Receipt Date: 20060222
  Transmission Date: 20060701
  Serious: Yes (Death)
  Sender: FDA-Public Use
  Company Number: US-BRISTOL-MYERS SQUIBB COMPANY-13292669

PATIENT
  Age: 62 Year
  Sex: Female

DRUGS (3)
  1. MEGACE [Suspect]
     Indication: ENDOMETRIAL CANCER
     Route: 048
     Dates: start: 20000101, end: 20060205
  2. INDERAL LA [Concomitant]
  3. INDOCIN [Concomitant]

REACTIONS (1)
  - DEATH [None]
